FAERS Safety Report 8539711-5 (Version None)
Quarter: 2012Q3

REPORT INFORMATION
  Report Type: 
  Country: None (occurrence: None)
  Receive Date: 20120726
  Receipt Date: 20110817
  Transmission Date: 20120928
  Serious: No
  Sender: FDA-Public Use
  Company Number: US-ASTRAZENECA-2009SE14079

PATIENT
  Sex: Female

DRUGS (4)
  1. SEROQUEL XR [Suspect]
     Dosage: FOUR TABLETS DAILY AS NEEDED
     Route: 048
  2. SEROQUEL XR [Suspect]
     Dosage: FOUR TABLETS DAILY AS NEEDED
     Route: 048
  3. SEROQUEL XR [Suspect]
     Indication: BIPOLAR DISORDER
     Route: 048
  4. SEROQUEL XR [Suspect]
     Indication: AGITATION
     Route: 048

REACTIONS (3)
  - STRESS [None]
  - AGITATION [None]
  - DRUG INEFFECTIVE [None]
